FAERS Safety Report 14092828 (Version 1)
Quarter: 2017Q4

REPORT INFORMATION
  Report Type: Spontaneous
  Country: SE (occurrence: SE)
  Receive Date: 20171016
  Receipt Date: 20171016
  Transmission Date: 20180321
  Serious: Yes (Life-Threatening, Other)
  Sender: FDA-Public Use
  Company Number: SE-PFIZER INC-2017440176

PATIENT
  Age: 83 Year
  Sex: Female

DRUGS (3)
  1. PRADAXA [Concomitant]
     Active Substance: DABIGATRAN ETEXILATE MESYLATE
     Dosage: UNK
  2. DOXAZOSIN [Suspect]
     Active Substance: DOXAZOSIN\DOXAZOSIN MESYLATE
     Indication: HYPERTENSION
     Dosage: 4 MG, 1X/DAY
     Dates: start: 201709, end: 201709
  3. LEVAXIN [Concomitant]
     Active Substance: LEVOTHYROXINE SODIUM
     Dosage: UNK

REACTIONS (4)
  - Urinary incontinence [Not Recovered/Not Resolved]
  - Dyspnoea [Recovered/Resolved]
  - Pneumonia [Not Recovered/Not Resolved]
  - Cough [Not Recovered/Not Resolved]

NARRATIVE: CASE EVENT DATE: 201709
